FAERS Safety Report 7673964-0 (Version None)
Quarter: 2011Q3

REPORT INFORMATION
  Report Type: 
  Country: None (occurrence: None)
  Receive Date: 20110810
  Receipt Date: 20110726
  Transmission Date: 20111222
  Serious: Yes (Hospitalization)
  Sender: FDA-Public Use
  Company Number: DE-US-EMD SERONO, INC.-7073280

PATIENT
  Sex: Female

DRUGS (6)
  1. REBIF [Suspect]
     Indication: PRODUCT USED FOR UNKNOWN INDICATION
     Route: 058
     Dates: start: 20110715, end: 20110726
  2. PANTOPRAZOLE [Concomitant]
     Route: 048
  3. TOLPERISON [Concomitant]
     Route: 048
  4. PREDNISOLONE [Concomitant]
  5. RAMIPRIL [Concomitant]
  6. KELTICAN FORTE [Concomitant]
     Route: 048

REACTIONS (3)
  - MUSCULOSKELETAL STIFFNESS [None]
  - GAIT DISTURBANCE [None]
  - MONOPLEGIA [None]
